FAERS Safety Report 7714504-7 (Version None)
Quarter: 2011Q3

REPORT INFORMATION
  Report Type: 
  Country: None (occurrence: None)
  Receive Date: 20110829
  Receipt Date: 20110817
  Transmission Date: 20111222
  Serious: Yes (Hospitalization)
  Sender: FDA-Public Use
  Company Number: US-BAYER-2011-020026

PATIENT
  Sex: Female
  Weight: 53.968 kg

DRUGS (7)
  1. YAZ [Suspect]
     Dosage: UNK
     Dates: start: 20030101, end: 20090101
  2. DROSPIRENONE AND ETHINYL ESTRADIOL [Suspect]
     Dosage: UNK
     Dates: start: 20030101, end: 20090101
  3. LEXAPRO [Concomitant]
     Indication: ANXIETY
     Dosage: UNK
     Dates: start: 20040101
  4. LEXAPRO [Concomitant]
     Indication: DEPRESSION
  5. VYTORIN [Concomitant]
     Dosage: UNK
     Dates: start: 20040101, end: 20090101
  6. YASMIN [Suspect]
     Dosage: UNK
     Dates: start: 20030101, end: 20090101
  7. ALBUTEROL SULFATE AUTOHALER [Concomitant]

REACTIONS (5)
  - ANXIETY [None]
  - INJURY [None]
  - THROMBOSIS [None]
  - PAIN [None]
  - CEREBROVASCULAR ACCIDENT [None]
